FAERS Safety Report 9310708 (Version 1)
Quarter: 2013Q2

REPORT INFORMATION
  Report Type: Spontaneous
  Country: GB (occurrence: GB)
  Receive Date: 20130527
  Receipt Date: 20130527
  Transmission Date: 20140414
  Serious: Yes (Hospitalization, Other)
  Sender: FDA-Public Use
  Company Number: GB-BRISTOL-MYERS SQUIBB COMPANY-18825547

PATIENT
  Age: 51 Year
  Sex: Male

DRUGS (4)
  1. REYATAZ [Suspect]
     Indication: RETROVIRAL INFECTION
     Route: 048
     Dates: start: 20080313, end: 20130131
  2. RITONAVIR [Suspect]
     Indication: RETROVIRAL INFECTION
     Route: 048
     Dates: start: 20080313
  3. TRUVADA [Suspect]
     Indication: RETROVIRAL INFECTION
     Dosage: 1DF: 1TAB
     Route: 048
     Dates: start: 20080313
  4. TENOFOVIR [Concomitant]

REACTIONS (2)
  - Nephrolithiasis [Recovered/Resolved]
  - Renal failure acute [Recovered/Resolved]
